FAERS Safety Report 14538960 (Version 1)
Quarter: 2018Q1

REPORT INFORMATION
  Report Type: Spontaneous
  Country: IN (occurrence: IN)
  Receive Date: 20180216
  Receipt Date: 20180216
  Transmission Date: 20180509
  Serious: Yes (Death, Hospitalization)
  Sender: FDA-Public Use
  Company Number: IN-CIPLA LTD.-2018IN04629

PATIENT

DRUGS (2)
  1. ALUMINUM PHOSPHIDE [Suspect]
     Active Substance: ALUMINUM PHOSPHIDE
     Indication: PRODUCT USED FOR UNKNOWN INDICATION
     Dosage: UNK
     Route: 065
  2. CETIRIZINE [Suspect]
     Active Substance: CETIRIZINE HYDROCHLORIDE
     Indication: PRODUCT USED FOR UNKNOWN INDICATION
     Dosage: UNK, 20 TABLETS
     Route: 048

REACTIONS (12)
  - Ventricular fibrillation [Unknown]
  - Generalised tonic-clonic seizure [Unknown]
  - Cardiotoxicity [None]
  - Metabolic acidosis [Unknown]
  - Hypotension [Unknown]
  - Acute respiratory failure [Fatal]
  - Abdominal pain upper [Unknown]
  - Nausea [Unknown]
  - Haemorrhagic diathesis [Fatal]
  - Overdose [Unknown]
  - Acute myocardial infarction [Unknown]
  - Vomiting [Unknown]
